FAERS Safety Report 7040516-5 (Version None)
Quarter: 2010Q4

REPORT INFORMATION
  Report Type: 
  Country: None (occurrence: None)
  Receive Date: 20101008
  Receipt Date: 20101008
  Transmission Date: 20110411
  Serious: Yes (Other)
  Sender: FDA-Public Use
  Company Number: None

PATIENT
  Sex: Male
  Weight: 85.5 kg

DRUGS (1)
  1. TOPAMAX [Suspect]
     Indication: MYOCLONUS
     Dosage: TOPAMAX ORAL
     Route: 048

REACTIONS (1)
  - RENAL FAILURE ACUTE [None]
